FAERS Safety Report 10246482 (Version 1)
Quarter: 2014Q2

REPORT INFORMATION
  Report Type: Spontaneous
  Country: FR (occurrence: FR)
  Receive Date: 20140619
  Receipt Date: 20140619
  Transmission Date: 20141212
  Serious: No
  Sender: FDA-Public Use
  Company Number: FR-LUNDBECK-DKLU1100578

PATIENT
  Age: 25 Month
  Sex: Female

DRUGS (1)
  1. URBANYL [Suspect]
     Indication: EPILEPSY
     Route: 048
     Dates: start: 20140520

REACTIONS (1)
  - Drug prescribing error [Unknown]
